FAERS Safety Report 18017169 (Version 2)
Quarter: 2021Q1

REPORT INFORMATION
  Report Type: Spontaneous
  Country: CA (occurrence: CA)
  Receive Date: 20200713
  Receipt Date: 20210201
  Transmission Date: 20210419
  Serious: Yes (Other)
  Sender: FDA-Public Use
  Company Number: CA-GLAXOSMITHKLINE-CA2020GSK128012

PATIENT
  Age: 53 Year
  Sex: Female

DRUGS (32)
  1. MOXIFLOXACIN. [Suspect]
     Active Substance: MOXIFLOXACIN
     Indication: RASH
     Dosage: UNK
     Route: 065
  2. SENOKOT [Suspect]
     Active Substance: SENNOSIDES
     Indication: ABDOMINAL PAIN
     Dosage: UNK
     Route: 065
  3. SPIRIVA [Suspect]
     Active Substance: TIOTROPIUM BROMIDE MONOHYDRATE
     Indication: PRODUCT USED FOR UNKNOWN INDICATION
     Dosage: UNK
     Route: 065
  4. MACROBID [Suspect]
     Active Substance: NITROFURANTOIN\NITROFURANTOIN MONOHYDRATE
     Indication: CYSTITIS
     Dosage: UNK
     Route: 065
  5. CELEBREX [Suspect]
     Active Substance: CELECOXIB
     Indication: OESOPHAGEAL PAIN
     Dosage: UNK
     Route: 065
  6. COVERSYL [Suspect]
     Active Substance: PERINDOPRIL
     Indication: BLOOD PRESSURE MEASUREMENT
     Dosage: 1 DF, 1D
     Route: 065
  7. INDOMETHACIN. [Suspect]
     Active Substance: INDOMETHACIN
     Indication: VISION BLURRED
  8. GLYCERYL TRINITRATE [Suspect]
     Active Substance: NITROGLYCERIN
     Indication: OESOPHAGEAL SPASM
     Dosage: UNK
     Route: 065
  9. CLOPIDOGREL [Suspect]
     Active Substance: CLOPIDOGREL BISULFATE
     Indication: ANTICOAGULANT THERAPY
     Dosage: 1 DF, 1D
     Route: 065
  10. FERROUS GLUCONATE [Suspect]
     Active Substance: FERROUS GLUCONATE
     Indication: IRON DEFICIENCY
     Dosage: UNK
     Route: 065
  11. AMITRIPTYLINE [Suspect]
     Active Substance: AMITRIPTYLINE
     Indication: DEPRESSION
     Dosage: UNK
     Route: 065
  12. APO?CEFUROXIME [Suspect]
     Active Substance: CEFUROXIME AXETIL
     Indication: URTICARIA
     Dosage: UNK
     Route: 065
  13. ATROVENT HFA [Suspect]
     Active Substance: IPRATROPIUM BROMIDE
     Indication: PRODUCT USED FOR UNKNOWN INDICATION
     Dosage: UNK
     Route: 065
  14. CELEBREX [Suspect]
     Active Substance: CELECOXIB
     Indication: ABDOMINAL PAIN UPPER
  15. GRAVOL [Suspect]
     Active Substance: DIMENHYDRINATE
     Indication: ANXIETY
     Dosage: UNK
     Route: 065
  16. TYLENOL WITH CODEINE [Suspect]
     Active Substance: ACETAMINOPHEN\CODEINE PHOSPHATE
     Indication: PRURITUS
     Dosage: UNK
     Route: 065
  17. FOSAVANCE [Suspect]
     Active Substance: ALENDRONATE SODIUM\CHOLECALCIFEROL
     Indication: OSTEOPOROSIS POSTMENOPAUSAL
     Dosage: 1 DF, WE
     Route: 065
  18. PREDNISONE. [Suspect]
     Active Substance: PREDNISONE
     Indication: PRODUCT USED FOR UNKNOWN INDICATION
     Dosage: UNK
     Route: 065
  19. CIPROFLOXACIN HYDROCHLORIDE. [Suspect]
     Active Substance: CIPROFLOXACIN HYDROCHLORIDE
     Indication: URTICARIA
     Dosage: UNK
     Route: 065
  20. VIOXX [Suspect]
     Active Substance: ROFECOXIB
     Indication: URTICARIA
     Dosage: UNK
     Route: 065
  21. CYMBALTA [Suspect]
     Active Substance: DULOXETINE HYDROCHLORIDE
     Indication: ANXIETY
  22. NAPROXEN SODIUM. [Suspect]
     Active Substance: NAPROXEN SODIUM
     Indication: PRURITUS
     Dosage: UNK
     Route: 065
  23. SALBUTAMOL [Suspect]
     Active Substance: ALBUTEROL
     Indication: PRODUCT USED FOR UNKNOWN INDICATION
     Dosage: UNK
     Route: 065
  24. BUPROPION. [Suspect]
     Active Substance: BUPROPION
     Indication: URTICARIA
     Dosage: UNK
     Route: 065
  25. APO?SULFATRIM [Suspect]
     Active Substance: SULFAMETHOXAZOLE\TRIMETHOPRIM
     Indication: STOMATITIS
     Dosage: UNK
     Route: 065
  26. FUROSEMIDE. [Suspect]
     Active Substance: FUROSEMIDE
     Indication: FLUID RETENTION
     Dosage: UNK
     Route: 065
  27. POTASSIUM CHLORIDE. [Suspect]
     Active Substance: POTASSIUM CHLORIDE
     Indication: PRODUCT USED FOR UNKNOWN INDICATION
     Dosage: 1 DF, TID
     Route: 065
  28. CYMBALTA [Suspect]
     Active Substance: DULOXETINE HYDROCHLORIDE
     Indication: DEPRESSION
     Dosage: 1 DF, 1D
     Route: 065
  29. GABAPENTIN. [Suspect]
     Active Substance: GABAPENTIN
     Indication: PRODUCT USED FOR UNKNOWN INDICATION
     Dosage: UNK
     Route: 065
  30. INDOMETHACIN. [Suspect]
     Active Substance: INDOMETHACIN
     Indication: VOMITING
     Dosage: UNK
     Route: 065
  31. INDOMETHACIN. [Suspect]
     Active Substance: INDOMETHACIN
     Indication: ABDOMINAL PAIN UPPER
  32. KETAMINE [Suspect]
     Active Substance: KETAMINE
     Indication: HALLUCINATION
     Dosage: UNK
     Route: 065

REACTIONS (29)
  - Fatigue [Unknown]
  - Fibromyalgia [Unknown]
  - Bronchitis [Unknown]
  - Dizziness [Unknown]
  - Pneumonia [Unknown]
  - Abdominal pain [Unknown]
  - Vision blurred [Unknown]
  - Migraine [Unknown]
  - Oesophageal spasm [Unknown]
  - Stomatitis [Unknown]
  - Depression [Unknown]
  - Anxiety [Unknown]
  - Tinnitus [Unknown]
  - Sleep apnoea syndrome [Unknown]
  - Vomiting [Unknown]
  - Rash [Unknown]
  - Agitation [Unknown]
  - Feeling abnormal [Unknown]
  - Lymphoedema [Unknown]
  - Cystitis [Unknown]
  - Hallucination [Unknown]
  - Malaise [Unknown]
  - Diarrhoea [Unknown]
  - Oesophageal pain [Unknown]
  - Fluid retention [Unknown]
  - Hyperhidrosis [Unknown]
  - Abdominal pain upper [Unknown]
  - Myocardial infarction [Unknown]
  - Pruritus [Unknown]
